FAERS Safety Report 6828250-5 (Version None)
Quarter: 2010Q3

REPORT INFORMATION
  Report Type: 
  Country: None (occurrence: None)
  Receive Date: 20100709
  Receipt Date: 20070201
  Transmission Date: 20110219
  Serious: No
  Sender: FDA-Public Use
  Company Number: US-PFIZER INC-2007009725

PATIENT
  Age: 69 Year
  Sex: Female
  Weight: 53.52 kg

DRUGS (5)
  1. CHANTIX [Suspect]
     Indication: SMOKING CESSATION THERAPY
     Dates: start: 20070121
  2. LESCOL [Concomitant]
     Indication: BLOOD CHOLESTEROL
  3. PREVACID [Concomitant]
     Indication: GASTROOESOPHAGEAL REFLUX DISEASE
  4. PREMARIN [Concomitant]
  5. ZETIA [Concomitant]
     Indication: BLOOD CHOLESTEROL

REACTIONS (2)
  - RENAL PAIN [None]
  - VOMITING [None]
